FAERS Safety Report 23072918 (Version 1)
Quarter: 2023Q4

REPORT INFORMATION
  Report Type: Spontaneous
  Country: IT (occurrence: IT)
  Receive Date: 20231017
  Receipt Date: 20231017
  Transmission Date: 20240110
  Serious: Yes (Other)
  Sender: FDA-Public Use
  Company Number: None

PATIENT
  Age: 79 Year
  Sex: Male
  Weight: 71 kg

DRUGS (2)
  1. ISATUXIMAB [Suspect]
     Active Substance: ISATUXIMAB
     Indication: Plasma cell myeloma
     Dosage: 10 MG/KG DAYS 1, 8, 15, 22
     Route: 042
     Dates: start: 20220822, end: 20220829
  2. CARFILZOMIB [Suspect]
     Active Substance: CARFILZOMIB
     Indication: Plasma cell myeloma
     Dosage: 20MG/M2 DAYS 1 AND 2 IV56MG/M2 DAYS 8 AND 9 DAYS 1,8,15,22 IV
     Route: 042
     Dates: start: 20220822, end: 20220930

REACTIONS (1)
  - Cardiac failure [Recovered/Resolved]

NARRATIVE: CASE EVENT DATE: 20220830
